FAERS Safety Report 25457922 (Version 1)
Quarter: 2025Q2

REPORT INFORMATION
  Report Type: Spontaneous
  Country: CN (occurrence: CN)
  Receive Date: 20250620
  Receipt Date: 20250620
  Transmission Date: 20250717
  Serious: Yes (Hospitalization, Other)
  Sender: Haleon PLC
  Company Number: CN-HALEON-2248033

PATIENT
  Age: 25 Year
  Sex: Female
  Weight: 58 kg

DRUGS (2)
  1. IBUPROFEN [Suspect]
     Active Substance: IBUPROFEN
     Indication: Intentional overdose
     Route: 048
     Dates: start: 20250611, end: 20250611
  2. AMOXICILLIN [Suspect]
     Active Substance: AMOXICILLIN
     Indication: Intentional overdose
     Route: 048
     Dates: start: 20250611, end: 20250611

REACTIONS (4)
  - Hypokalaemia [Recovering/Resolving]
  - Intentional overdose [Recovering/Resolving]
  - Dizziness [Recovering/Resolving]
  - Somnolence [Recovering/Resolving]

NARRATIVE: CASE EVENT DATE: 20250611
